FAERS Safety Report 5911617-7 (Version None)
Quarter: 2008Q4

REPORT INFORMATION
  Report Type: 
  Country: None (occurrence: None)
  Receive Date: 20081003
  Receipt Date: 20080922
  Transmission Date: 20090506
  Serious: Yes (Hospitalization)
  Sender: FDA-Public Use
  Company Number: 1-16663242/MED-08176

PATIENT
  Age: 60 Year
  Sex: Female
  Weight: 65.318 kg

DRUGS (8)
  1. SPIRONOLACTONE [Suspect]
     Indication: HYPERTENSION
     Dosage: 50 MG DAILY EVERY MORNING, ORAL
     Route: 048
     Dates: start: 20030101
  2. PRILOSEC [Suspect]
     Indication: GASTROOESOPHAGEAL REFLUX DISEASE
     Dosage: ORAL
     Route: 048
     Dates: start: 20080601, end: 20080601
  3. UNSPECIFIED ^MUSCLE RELAXANT^ [Suspect]
     Indication: BACK PAIN
     Dates: start: 20080701, end: 20080701
  4. BUSPIRONE HCL [Suspect]
     Dosage: ORAL
     Route: 048
     Dates: start: 20080101, end: 20080701
  5. ASPIRIN [Concomitant]
  6. LISINOPRIL [Concomitant]
  7. DAILY MULTIVITAMIN [Concomitant]
  8. CALCIUM WITH VITAMIN D [Concomitant]

REACTIONS (12)
  - ARTERIOSCLEROSIS CORONARY ARTERY [None]
  - BACK PAIN [None]
  - BURNING SENSATION [None]
  - CHEST DISCOMFORT [None]
  - CHEST PAIN [None]
  - DRUG INEFFECTIVE [None]
  - FATIGUE [None]
  - GASTROOESOPHAGEAL REFLUX DISEASE [None]
  - HEADACHE [None]
  - MYOCARDIAL INFARCTION [None]
  - PULMONARY FUNCTION TEST ABNORMAL [None]
  - VISION BLURRED [None]
